FAERS Safety Report 16268224 (Version 1)
Quarter: 2019Q2

REPORT INFORMATION
  Report Type: Spontaneous
  Country: US (occurrence: US)
  Receive Date: 20190503
  Receipt Date: 20190503
  Transmission Date: 20190711
  Serious: No
  Sender: FDA-Public Use
  Company Number: US-LUPIN PHARMACEUTICALS INC.-2019-01182

PATIENT
  Age: 75 Year
  Sex: Female
  Weight: 47.62 kg

DRUGS (3)
  1. LINZESS [Interacting]
     Active Substance: LINACLOTIDE
     Indication: CONSTIPATION
     Dosage: UNK
     Route: 065
  2. AZITHROMYCIN TEVA [Concomitant]
     Active Substance: AZITHROMYCIN
     Indication: INFLUENZA
     Dosage: UNK
     Route: 065
  3. OSELTAMIVIR PHOSPHATE CAPSULES USP, 75 MG (BASE) [Suspect]
     Active Substance: OSELTAMIVIR PHOSPHATE
     Indication: INFLUENZA
     Dosage: 75 MILLIGRAM, BID
     Route: 048
     Dates: start: 20190206

REACTIONS (2)
  - Drug interaction [Unknown]
  - Constipation [Not Recovered/Not Resolved]

NARRATIVE: CASE EVENT DATE: 20190206
